FAERS Safety Report 16960681 (Version 1)
Quarter: 2019Q4

REPORT INFORMATION
  Report Type: Spontaneous
  Country: US (occurrence: US)
  Receive Date: 20191025
  Receipt Date: 20191025
  Transmission Date: 20200122
  Serious: Yes (Other)
  Sender: FDA-Public Use
  Company Number: US-ROCHE-2439476

PATIENT
  Age: 54 Year
  Sex: Female

DRUGS (2)
  1. RIVAROXABAN [Concomitant]
     Active Substance: RIVAROXABAN
  2. TENECTEPLASE [Suspect]
     Active Substance: TENECTEPLASE
     Indication: PULMONARY EMBOLISM
     Route: 065

REACTIONS (4)
  - Cardiogenic shock [Recovering/Resolving]
  - Abdominal compartment syndrome [Recovering/Resolving]
  - Guillain-Barre syndrome [Recovering/Resolving]
  - Retroperitoneal haemorrhage [Recovering/Resolving]
